FAERS Safety Report 5902446-9 (Version None)
Quarter: 2008Q3

REPORT INFORMATION
  Report Type: 
  Country: None (occurrence: None)
  Receive Date: 20080929
  Receipt Date: 20080926
  Transmission Date: 20090109
  Serious: Yes (Death, Hospitalization)
  Sender: FDA-Public Use
  Company Number: BR-ASTRAZENECA-2008UW20577

PATIENT
  Age: 20700 Day
  Sex: Female
  Weight: 65.4 kg

DRUGS (1)
  1. FASLODEX [Suspect]
     Route: 030

REACTIONS (3)
  - LUNG INFECTION [None]
  - PLEURAL EFFUSION [None]
  - URINARY TRACT INFECTION [None]
